FAERS Safety Report 6852199-5 (Version None)
Quarter: 2010Q3

REPORT INFORMATION
  Report Type: 
  Country: None (occurrence: None)
  Receive Date: 20100717
  Receipt Date: 20071121
  Transmission Date: 20110219
  Serious: No
  Sender: FDA-Public Use
  Company Number: US-PFIZER INC-2007094526

PATIENT
  Sex: Female
  Weight: 108.41 kg

DRUGS (9)
  1. CHANTIX [Suspect]
     Indication: SMOKING CESSATION THERAPY
     Dates: start: 20071003
  2. OXYGEN [Concomitant]
  3. METFORMIN HCL [Concomitant]
  4. LEVOXYL [Concomitant]
  5. MULTI-VITAMINS [Concomitant]
  6. GEODON [Concomitant]
  7. HYDROXYZINE HYDROCHLORIDE [Concomitant]
  8. ALBUTEROL [Concomitant]
     Route: 055
  9. ADVAIR DISKUS 100/50 [Concomitant]
     Route: 055

REACTIONS (5)
  - ABDOMINAL PAIN UPPER [None]
  - CONSTIPATION [None]
  - FLATULENCE [None]
  - HEADACHE [None]
  - INSOMNIA [None]
